FAERS Safety Report 10479329 (Version 1)
Quarter: 2014Q3

REPORT INFORMATION
  Report Type: Report from Study
  Country: BR (occurrence: BR)
  Receive Date: 20140926
  Receipt Date: 20140926
  Transmission Date: 20150326
  Serious: Yes (Hospitalization, Other)
  Sender: FDA-Public Use
  Company Number: BR-ABBVIE-14K-020-1287502-00

PATIENT
  Sex: Female
  Weight: 78 kg

DRUGS (5)
  1. NAPRIX D [Concomitant]
     Indication: HYPERTENSION
     Dosage: RAMIPRIL  5MG + HYDROCHLOROTHIAZIDE 12,5MG
     Route: 048
  2. HUMIRA [Suspect]
     Active Substance: ADALIMUMAB
     Indication: RHEUMATOID ARTHRITIS
     Route: 058
  3. CYCLOBENZAPRINE [Concomitant]
     Active Substance: CYCLOBENZAPRINE
     Indication: PAIN
     Dosage: ONCE A DAY
     Route: 048
     Dates: start: 201401
  4. EXODUS [Concomitant]
     Active Substance: ESCITALOPRAM OXALATE
     Indication: HYPERTENSION
     Route: 048
  5. OMEPRAZOLE. [Concomitant]
     Active Substance: OMEPRAZOLE
     Indication: GASTRIC DISORDER
     Dosage: IN THE MORNING
     Route: 048

REACTIONS (20)
  - Ankle fracture [Recovered/Resolved]
  - Chest pain [Recovered/Resolved]
  - Hypertension [Recovered/Resolved]
  - Malaise [Recovered/Resolved]
  - Hypertension [Recovered/Resolved]
  - Malaise [Recovered/Resolved]
  - Loss of consciousness [Recovered/Resolved]
  - Nervousness [Recovered/Resolved]
  - Musculoskeletal chest pain [Recovered/Resolved]
  - Painful respiration [Recovered/Resolved]
  - Ear pain [Not Recovered/Not Resolved]
  - Oropharyngeal pain [Not Recovered/Not Resolved]
  - Nasal discharge discolouration [Not Recovered/Not Resolved]
  - Myocardial infarction [Recovered/Resolved]
  - Myocardial infarction [Recovered/Resolved]
  - Nervousness [Unknown]
  - Epistaxis [Not Recovered/Not Resolved]
  - Coordination abnormal [Unknown]
  - Gastric disorder [Recovered/Resolved]
  - Nasopharyngitis [Not Recovered/Not Resolved]

NARRATIVE: CASE EVENT DATE: 2009
